FAERS Safety Report 14505406 (Version 2)
Quarter: 2018Q1

REPORT INFORMATION
  Report Type: Spontaneous
  Country: NO (occurrence: NO)
  Receive Date: 20180208
  Receipt Date: 20180216
  Transmission Date: 20180509
  Serious: Yes (Other)
  Sender: FDA-Public Use
  Company Number: NO-BRISTOL-MYERS SQUIBB COMPANY-BMS-2018-010526

PATIENT
  Age: 60 Year
  Sex: Male

DRUGS (1)
  1. OPDIVO [Suspect]
     Active Substance: NIVOLUMAB
     Indication: RENAL CELL CARCINOMA
     Dosage: UNAV
     Route: 065

REACTIONS (2)
  - Metastasis [Unknown]
  - Cerebral haemorrhage [Unknown]

NARRATIVE: CASE EVENT DATE: 201708
